FAERS Safety Report 7255861-8 (Version None)
Quarter: 2011Q1

REPORT INFORMATION
  Report Type: 
  Country: None (occurrence: None)
  Receive Date: 20110129
  Receipt Date: 20100515
  Transmission Date: 20110831
  Serious: Yes (Hospitalization)
  Sender: FDA-Public Use
  Company Number: US-ABBOTT-10P-163-0637755-00

PATIENT
  Sex: Female
  Weight: 77.634 kg

DRUGS (11)
  1. METFORMIN [Concomitant]
     Route: 048
  2. HYDROCHLOROTHIAZIDE [Concomitant]
     Route: 048
  3. ASPIRIN [Concomitant]
     Route: 048
  4. METOPROLOL TARTRATE [Concomitant]
     Route: 048
  5. FOLIC ACID [Concomitant]
     Route: 048
  6. HUMIRA [Suspect]
     Indication: PSORIASIS
     Dates: start: 20090701
  7. LISINOPRIL [Concomitant]
     Route: 048
  8. DOXEPIN HCL [Concomitant]
  9. HUMIRA [Suspect]
     Indication: PSORIATIC ARTHROPATHY
  10. ACIPHEX [Concomitant]
  11. AMLODIPINE [Concomitant]
     Route: 048

REACTIONS (9)
  - EXFOLIATIVE RASH [None]
  - URINARY TRACT INFECTION [None]
  - BRONCHITIS [None]
  - PSORIASIS [None]
  - RASH PAPULAR [None]
  - RASH [None]
  - DRUG INEFFECTIVE [None]
  - RASH GENERALISED [None]
  - BURNING SENSATION [None]
